FAERS Safety Report 6863514-0 (Version None)
Quarter: 2010Q3

REPORT INFORMATION
  Report Type: 
  Country: None (occurrence: None)
  Receive Date: 20100721
  Receipt Date: 20100709
  Transmission Date: 20110219
  Serious: Yes (Other)
  Sender: FDA-Public Use
  Company Number: US-PFIZER INC-2010019915

PATIENT
  Sex: Female
  Weight: 74.38 kg

DRUGS (5)
  1. LYRICA [Suspect]
     Indication: FIBROMYALGIA
     Dosage: 100 MG, 2X/DAY
     Dates: start: 20090617
  2. LYRICA [Suspect]
     Dosage: FREQUENCY: 2X/DAY,
     Dates: start: 20090617
  3. METFORMIN [Concomitant]
     Dosage: UNK
  4. FLUOXETINE [Concomitant]
     Dosage: UNK
  5. ALDACTAZIDE [Concomitant]
     Dosage: UNK

REACTIONS (6)
  - ASCITES [None]
  - DYSPNOEA [None]
  - HEPATIC ENZYME INCREASED [None]
  - HEPATIC STEATOSIS [None]
  - OEDEMA PERIPHERAL [None]
  - WEIGHT INCREASED [None]
